FAERS Safety Report 9054603 (Version 2)
Quarter: 2013Q1

REPORT INFORMATION
  Report Type: Report from Study
  Country: US (occurrence: US)
  Receive Date: 20130208
  Receipt Date: 20130221
  Transmission Date: 20140127
  Serious: Yes (Hospitalization, Other)
  Sender: FDA-Public Use
  Company Number: US-BRISTOL-MYERS SQUIBB COMPANY-16978132

PATIENT
  Age: 79 Year
  Sex: Male

DRUGS (5)
  1. APIXABAN [Suspect]
     Indication: THROMBOSIS PROPHYLAXIS
     Route: 048
     Dates: start: 20100720, end: 20120615
  2. FOLIC ACID [Concomitant]
     Route: 048
  3. TRICOR [Concomitant]
     Indication: HYPERLIPIDAEMIA
     Route: 048
  4. AMBIEN [Concomitant]
     Indication: INSOMNIA
     Dosage: AT BED TIME
  5. CRESTOR [Concomitant]
     Indication: HYPERLIPIDAEMIA

REACTIONS (2)
  - Duodenal ulcer [Recovered/Resolved]
  - Gastritis erosive [Recovered/Resolved]
